FAERS Safety Report 12681587 (Version 2)
Quarter: 2017Q2

REPORT INFORMATION
  Report Type: Spontaneous
  Country: IT (occurrence: IT)
  Receive Date: 20160824
  Receipt Date: 20170626
  Transmission Date: 20170830
  Serious: Yes (Other)
  Sender: FDA-Public Use
  Company Number: IT-PFIZER INC-2016395008

PATIENT
  Age: 18 Year
  Sex: Male
  Weight: 70 kg

DRUGS (4)
  1. SERTRALINE HCL [Suspect]
     Active Substance: SERTRALINE HYDROCHLORIDE
     Dosage: UNK
     Route: 048
     Dates: start: 20150922, end: 20150922
  2. INVEGA [Suspect]
     Active Substance: PALIPERIDONE
     Dosage: 6 MG, UNK
     Route: 048
     Dates: start: 20150922, end: 20150922
  3. AKINETON [Suspect]
     Active Substance: BIPERIDEN HYDROCHLORIDE
     Dosage: UNK
     Route: 048
     Dates: start: 20150922, end: 20150922
  4. DEPAKIN CHRONO /00228502/ [Suspect]
     Active Substance: VALPROATE SODIUM
     Dosage: 500 MG, UNK
     Route: 048
     Dates: start: 20150922, end: 20150922

REACTIONS (4)
  - Intentional product misuse [Unknown]
  - Hallucination [Unknown]
  - Intentional self-injury [Unknown]
  - Drug use disorder [Unknown]

NARRATIVE: CASE EVENT DATE: 20150922
